FAERS Safety Report 6131731-3 (Version None)
Quarter: 2009Q1

REPORT INFORMATION
  Report Type: 
  Country: None (occurrence: None)
  Receive Date: 20090325
  Receipt Date: 20090319
  Transmission Date: 20090719
  Serious: Yes (Hospitalization)
  Sender: FDA-Public Use
  Company Number: PHEH2009US02829

PATIENT
  Sex: Female
  Weight: 97.506 kg

DRUGS (12)
  1. RECLAST [Suspect]
     Indication: OSTEOPOROSIS
     Dosage: 5 MG, ANNUALLY
     Route: 042
     Dates: start: 20090210
  2. ALLOPURINOL [Concomitant]
  3. COUMADIN [Concomitant]
  4. LASIX [Concomitant]
  5. MICRO-K [Concomitant]
  6. NEURONTIN [Concomitant]
  7. NORVASC [Concomitant]
  8. SYMBICORT TURBUHALER ^DRACO^ [Concomitant]
  9. NOVOLOG [Concomitant]
  10. ALBUTEROL [Concomitant]
  11. COMBIVENT [Concomitant]
  12. SYNTHROID [Concomitant]

REACTIONS (3)
  - BLOOD CREATINE PHOSPHOKINASE INCREASED [None]
  - MUSCLE SPASMS [None]
  - MYALGIA [None]
